FAERS Safety Report 7710320-0 (Version None)
Quarter: 2011Q3

REPORT INFORMATION
  Report Type: 
  Country: None (occurrence: None)
  Receive Date: 20110825
  Receipt Date: 20110527
  Transmission Date: 20111222
  Serious: Yes (Other)
  Sender: FDA-Public Use
  Company Number: US-MYLANLABS-2011S1011343

PATIENT
  Sex: Female

DRUGS (3)
  1. ALENDRONATE SODIUM [Suspect]
  2. FOSAMAX PLUS D [Suspect]
  3. FOSAMAX [Suspect]

REACTIONS (1)
  - OSTEONECROSIS OF JAW [None]
